FAERS Safety Report 13554345 (Version 2)
Quarter: 2017Q2

REPORT INFORMATION
  Report Type: Spontaneous
  Country: CA (occurrence: CA)
  Receive Date: 20170517
  Receipt Date: 20170630
  Transmission Date: 20170830
  Serious: Yes (Other)
  Sender: FDA-Public Use
  Company Number: CA-PFIZER INC-2017208176

PATIENT
  Sex: Female

DRUGS (2)
  1. CYTOMEL [Suspect]
     Active Substance: LIOTHYRONINE SODIUM
     Indication: THYROID DISORDER
     Dosage: 12.5 UG, 1X/DAY
     Dates: start: 2002
  2. SYNTHROID [Concomitant]
     Active Substance: LEVOTHYROXINE SODIUM
     Dosage: 100 UG, 1X/DAY

REACTIONS (11)
  - Heart rate decreased [Unknown]
  - Dizziness [Unknown]
  - Confusional state [Recovering/Resolving]
  - Asthenia [Unknown]
  - Constipation [Unknown]
  - Hypothyroidism [Recovered/Resolved]
  - Hypertension [Unknown]
  - Red blood cell sedimentation rate increased [Unknown]
  - Depressed level of consciousness [Recovering/Resolving]
  - Emotional disorder [Unknown]
  - Depression [Unknown]
